FAERS Safety Report 17348799 (Version 1)
Quarter: 2020Q1

REPORT INFORMATION
  Report Type: Report from Study
  Country: US (occurrence: US)
  Receive Date: 20200129
  Receipt Date: 20200129
  Transmission Date: 20200409
  Serious: No
  Sender: FDA-Public Use
  Company Number: US-EXELIXIS-CABO-19024645

PATIENT
  Sex: Male

DRUGS (1)
  1. CABOMETYX [Suspect]
     Active Substance: CABOZANTINIB S-MALATE
     Indication: RENAL CANCER
     Dosage: 60 MG, QD (IN THE MORNING, WITHOUT FOOD)
     Dates: start: 20190925, end: 20191204

REACTIONS (10)
  - Hair colour changes [Unknown]
  - Muscular weakness [Unknown]
  - Dysphonia [Not Recovered/Not Resolved]
  - Hepatic enzyme increased [Unknown]
  - Pruritus [Unknown]
  - Dry skin [Unknown]
  - Diarrhoea [Recovered/Resolved]
  - Rash [Unknown]
  - Taste disorder [Unknown]
  - Palmar-plantar erythrodysaesthesia syndrome [Unknown]
